FAERS Safety Report 12196424 (Version 5)
Quarter: 2016Q2

REPORT INFORMATION
  Report Type: Spontaneous
  Country: DE (occurrence: DE)
  Receive Date: 20160321
  Receipt Date: 20160615
  Transmission Date: 20160815
  Serious: Yes (Life-Threatening, Hospitalization, Other)
  Sender: FDA-Public Use
  Company Number: DE-GLAXOSMITHKLINE-DE2016GSK038546

PATIENT
  Age: 52 Year
  Sex: Male
  Weight: 72 kg

DRUGS (1)
  1. MALARONE [Suspect]
     Active Substance: ATOVAQUONE\PROGUANIL HYDROCHLORIDE
     Indication: MALARIA PROPHYLAXIS
     Dosage: 1 UNK, 1D
     Route: 048
     Dates: start: 20160214, end: 20160309

REACTIONS (24)
  - Rhinorrhoea [Recovered/Resolved]
  - Sleep disorder [Recovered/Resolved]
  - Leukocytosis [Recovering/Resolving]
  - Dizziness [Recovering/Resolving]
  - Blood pressure increased [Unknown]
  - Respiratory arrest [Recovered/Resolved]
  - Anxiety [Recovering/Resolving]
  - Lung disorder [Not Recovered/Not Resolved]
  - Thrombocytosis [Recovering/Resolving]
  - Chest pain [Not Recovered/Not Resolved]
  - Fear of death [Not Recovered/Not Resolved]
  - Loss of consciousness [Recovered/Resolved]
  - Urethritis [Recovered/Resolved]
  - Dyspnoea [Recovering/Resolving]
  - Suffocation feeling [Recovering/Resolving]
  - Altered state of consciousness [Recovered/Resolved]
  - Pneumonia [Unknown]
  - Asthma [Recovered/Resolved]
  - Panic attack [Recovering/Resolving]
  - Dysphagia [Recovering/Resolving]
  - Asthenia [Not Recovered/Not Resolved]
  - Hyperhidrosis [Unknown]
  - Urinary tract infection [Recovering/Resolving]
  - Cystitis [Recovered/Resolved]

NARRATIVE: CASE EVENT DATE: 20160215
